FAERS Safety Report 13189485 (Version 1)
Quarter: 2017Q1

REPORT INFORMATION
  Report Type: Spontaneous
  Country: NO (occurrence: NO)
  Receive Date: 20170206
  Receipt Date: 20170206
  Transmission Date: 20170428
  Serious: Yes (Other)
  Sender: FDA-Public Use
  Company Number: NO-PFIZER INC-2017046178

PATIENT
  Age: 35 Year
  Sex: Female

DRUGS (1)
  1. NEURONTIN [Suspect]
     Active Substance: GABAPENTIN
     Dosage: UNK

REACTIONS (4)
  - Poisoning [Recovered/Resolved]
  - Indifference [Recovered/Resolved]
  - Apathy [Recovered/Resolved]
  - Limb discomfort [Recovered/Resolved]
